FAERS Safety Report 11907084 (Version 1)
Quarter: 2016Q1

REPORT INFORMATION
  Report Type: Spontaneous
  Country: GB (occurrence: GB)
  Receive Date: 20160111
  Receipt Date: 20160111
  Transmission Date: 20160526
  Serious: Yes (Hospitalization)
  Sender: FDA-Public Use
  Company Number: GB-DEP_13364_2016

PATIENT
  Age: 31 Year
  Sex: Male
  Weight: 106 kg

DRUGS (14)
  1. PROCHLORPERAZINE. [Concomitant]
     Active Substance: PROCHLORPERAZINE
     Dosage: DF
     Dates: start: 20151117, end: 20151122
  2. GABAPENTIN. [Concomitant]
     Active Substance: GABAPENTIN
     Dosage: DF
     Dates: start: 20151013
  3. CAPSAICIN. [Concomitant]
     Active Substance: CAPSAICIN
     Indication: HYPERSENSITIVITY
     Dosage: DF
     Dates: start: 20151013, end: 20151023
  4. HUMALOG - INSULIN LISPRO [Concomitant]
     Dosage: DF
     Dates: start: 20150418
  5. TRAMADOL. [Concomitant]
     Active Substance: TRAMADOL
     Dosage: DF
     Dates: start: 20151221
  6. LIDOCAINE. [Concomitant]
     Active Substance: LIDOCAINE
     Dosage: DF
     Dates: start: 20151005, end: 20151020
  7. SERTRALINE [Concomitant]
     Active Substance: SERTRALINE HYDROCHLORIDE
     Dosage: DF
     Dates: start: 20150714
  8. NEFOPAM [Concomitant]
     Active Substance: NEFOPAM
     Dosage: DF
     Dates: start: 20150907, end: 20151125
  9. CETIRIZINE [Concomitant]
     Active Substance: CETIRIZINE HYDROCHLORIDE
     Indication: HYPERSENSITIVITY
     Dosage: DF
     Dates: start: 20150708
  10. ATORVASTATIN [Concomitant]
     Active Substance: ATORVASTATIN
     Indication: HYPERCHOLESTEROLAEMIA
     Dosage: DF
     Dates: start: 20150630
  11. LANTUS - INSULIN GLARGINE [Concomitant]
     Dosage: DF
     Dates: start: 20090923
  12. AMOXICILLIN. [Concomitant]
     Active Substance: AMOXICILLIN
     Indication: HYPERCHOLESTEROLAEMIA
     Dosage: DF
     Dates: start: 20151026, end: 20151031
  13. OMEPRAZOLE. [Concomitant]
     Active Substance: OMEPRAZOLE
     Dosage: DF
     Dates: start: 20150817
  14. TAPENTADOL [Suspect]
     Active Substance: TAPENTADOL
     Indication: PRODUCT USED FOR UNKNOWN INDICATION
     Dosage: DF
     Dates: start: 20151216

REACTIONS (1)
  - Non-cardiac chest pain [Recovered/Resolved]

NARRATIVE: CASE EVENT DATE: 20151221
